FAERS Safety Report 6565224-6 (Version None)
Quarter: 2010Q1

REPORT INFORMATION
  Report Type: 
  Country: None (occurrence: None)
  Receive Date: 20100201
  Receipt Date: 20100128
  Transmission Date: 20100710
  Serious: Yes (Death, Life-Threatening, Hospitalization, Other)
  Sender: FDA-Public Use
  Company Number: IT-ROCHE-461945

PATIENT
  Sex: Male
  Weight: 64 kg

DRUGS (3)
  1. CAPECITABINE [Suspect]
     Dosage: DAY2-DAY15 EVERY 21 DAYS, LAST DOSE PRIOR TO THE EVENT: 03 SEP 2006
     Route: 048
     Dates: start: 20060824, end: 20060903
  2. BEVACIZUMAB [Suspect]
     Dosage: ON DAY 1 EVERY 21 DAYS, LAST DOSE PRIOR TO THE EVENT: 24 AUG 2006
     Route: 042
     Dates: start: 20060824
  3. IRINOTECAN HCL [Suspect]
     Dosage: ON DAY 1 EVERY 21 DAYS, LAST DOSE PRIOR TO THE EVENT: 24 AUG 2006
     Route: 042
     Dates: start: 20060824

REACTIONS (3)
  - DIARRHOEA [None]
  - PANCYTOPENIA [None]
  - PYREXIA [None]
